FAERS Safety Report 12768513 (Version 1)
Quarter: 2016Q3

REPORT INFORMATION
  Report Type: Spontaneous
  Country: US (occurrence: US)
  Receive Date: 20160921
  Receipt Date: 20160921
  Transmission Date: 20161109
  Serious: No
  Sender: FDA-Public Use
  Company Number: US-TEIKOKU PHARMA USA-TPU2016-00597

PATIENT
  Sex: Female
  Weight: 61.29 kg

DRUGS (1)
  1. LIDOCAINE PATCH [Suspect]
     Active Substance: LIDOCAINE
     Indication: SCIATICA
     Route: 061
     Dates: end: 20160905

REACTIONS (3)
  - Rash macular [Recovering/Resolving]
  - Inappropriate schedule of drug administration [Recovered/Resolved]
  - Peripheral swelling [Recovering/Resolving]
